FAERS Safety Report 19575340 (Version 2)
Quarter: 2022Q3

REPORT INFORMATION
  Report Type: Report from Study
  Country: US (occurrence: US)
  Receive Date: 20210719
  Receipt Date: 20220713
  Transmission Date: 20221026
  Serious: No
  Sender: FDA-Public Use
  Company Number: US-VANDA PHARMACEUTICALS, INC-2021TASUS005027

PATIENT
  Sex: Female
  Weight: 79.274 kg

DRUGS (2)
  1. HETLIOZ [Suspect]
     Active Substance: TASIMELTEON
     Indication: Blindness
     Dosage: 20 MILLIGRAM, QHS AT BEDTIME
     Route: 048
  2. HETLIOZ [Suspect]
     Active Substance: TASIMELTEON
     Dosage: 20 MILLIGRAM, QHS AT BEDTIME
     Route: 048

REACTIONS (4)
  - Weight decreased [Unknown]
  - Insomnia [Unknown]
  - Adverse event [Unknown]
  - Drug ineffective [Unknown]
